FAERS Safety Report 5926680-7 (Version None)
Quarter: 2008Q4

REPORT INFORMATION
  Report Type: 
  Country: None (occurrence: None)
  Receive Date: 20081017
  Receipt Date: 20081010
  Transmission Date: 20090506
  Serious: Yes (Death)
  Sender: FDA-Public Use
  Company Number: 18704

PATIENT
  Age: 78 Year
  Sex: Female
  Weight: 70 kg

DRUGS (2)
  1. CISPLATIN [Suspect]
     Dosage: 80 MG FREQ IV
     Route: 036
     Dates: start: 20070830
  2. NAVELBINE [Suspect]
     Indication: NON-SMALL CELL LUNG CANCER
     Dosage: 50 MG FREG UNK IV
     Route: 042
     Dates: start: 20070830

REACTIONS (4)
  - CARDIAC ARREST [None]
  - LOWER RESPIRATORY TRACT INFECTION [None]
  - NEUTROPENIC SEPSIS [None]
  - TRANSIENT ISCHAEMIC ATTACK [None]
